FAERS Safety Report 21962040 (Version 1)
Quarter: 2023Q1

REPORT INFORMATION
  Report Type: Spontaneous
  Country: US (occurrence: US)
  Receive Date: 20230207
  Receipt Date: 20230207
  Transmission Date: 20230417
  Serious: Yes (Other)
  Sender: FDA-Public Use
  Company Number: US-PFIZER INC-202300050713

PATIENT
  Age: 50 Year
  Sex: Female
  Weight: 63.96 kg

DRUGS (7)
  1. SOLU-MEDROL [Suspect]
     Active Substance: METHYLPREDNISOLONE SODIUM SUCCINATE
     Dosage: 80MG SHOT EVERY 4 WEEKS
  2. BENLYSTA [Suspect]
     Active Substance: BELIMUMAB
     Indication: Systemic lupus erythematosus
     Dosage: INFUSIONS EVERY 4 WEEKS
  3. BENLYSTA [Suspect]
     Active Substance: BELIMUMAB
     Indication: Nephritis
     Dosage: SELF INJECTABLE
  4. BENLYSTA [Suspect]
     Active Substance: BELIMUMAB
     Dosage: INFUSION WITH STEROIDS
  5. DECADRON [Suspect]
     Active Substance: DEXAMETHASONE
     Dosage: EVERY 4 WEEKS
  6. METHOTREXATE [Concomitant]
     Active Substance: METHOTREXATE
     Indication: Rheumatoid arthritis
     Dosage: UNK, WEEKLY
     Dates: start: 202012, end: 20201225
  7. METHOTREXATE [Concomitant]
     Active Substance: METHOTREXATE
     Indication: Systemic lupus erythematosus

REACTIONS (10)
  - Sepsis [Not Recovered/Not Resolved]
  - Pyelonephritis [Not Recovered/Not Resolved]
  - Cystitis interstitial [Unknown]
  - Kidney infection [Unknown]
  - Urinary tract infection [Unknown]
  - Escherichia infection [Unknown]
  - Proteus infection [Unknown]
  - Adrenal insufficiency [Unknown]
  - Coagulopathy [Unknown]
  - Feeling abnormal [Unknown]
